FAERS Safety Report 22689038 (Version 8)
Quarter: 2024Q1

REPORT INFORMATION
  Report Type: Spontaneous
  Country: JP (occurrence: JP)
  Receive Date: 20230710
  Receipt Date: 20240326
  Transmission Date: 20240410
  Serious: Yes (Other)
  Sender: FDA-Public Use
  Company Number: JP-ONO-2023JP017246

PATIENT
  Age: 80 Year
  Sex: Male
  Weight: 46.5 kg

DRUGS (10)
  1. BRAFTOVI [Suspect]
     Active Substance: ENCORAFENIB
     Indication: Colon cancer
     Dosage: 300 MG, 1X/DAY
     Route: 048
     Dates: start: 20220830, end: 20230704
  2. BRAFTOVI [Suspect]
     Active Substance: ENCORAFENIB
     Dosage: 300 MG, EVERYDAY
     Route: 048
     Dates: start: 20230801
  3. ERBITUX [Suspect]
     Active Substance: CETUXIMAB
     Indication: Colon cancer
     Dosage: 580 MG, QW
     Route: 041
     Dates: start: 20220830, end: 20230605
  4. ERBITUX [Suspect]
     Active Substance: CETUXIMAB
     Dosage: UNK
     Route: 041
     Dates: start: 20230801
  5. LORATADINE [Concomitant]
     Active Substance: LORATADINE
     Dosage: 20 MG, EVERYDAY (FORMULATION: TABLET, ORALLY DISINTEGRATING)
     Route: 048
     Dates: start: 20230607, end: 20230927
  6. OLOPATADINE HYDROCHLORIDE [Concomitant]
     Active Substance: OLOPATADINE HYDROCHLORIDE
     Dosage: 10 MG, Q12H (FORMULATION: TABLET, ORALLY DISINTEGRATING)
     Route: 048
     Dates: start: 20230607
  7. BILASTINE [Concomitant]
     Active Substance: BILASTINE
     Dosage: 20 MG, EVERYDAY
     Route: 048
     Dates: start: 20230612, end: 20230823
  8. MONTELUKAST SODIUM [Concomitant]
     Active Substance: MONTELUKAST SODIUM
     Dosage: 10 MG, EVERYDAY
     Route: 048
     Dates: start: 20230619
  9. LEVOFLOXACIN HEMIHYDRATE [Concomitant]
     Active Substance: LEVOFLOXACIN
     Dosage: UNK, Q6H
     Route: 047
     Dates: start: 20230214, end: 20230823
  10. BETAMETHASONE SODIUM PHOSPHATE [Concomitant]
     Active Substance: BETAMETHASONE SODIUM PHOSPHATE
     Dosage: UNK, Q6H
     Route: 047
     Dates: start: 20230214

REACTIONS (3)
  - Uveitis [Recovering/Resolving]
  - Dermatitis [Unknown]
  - Pruritus [Unknown]

NARRATIVE: CASE EVENT DATE: 20230501
